FAERS Safety Report 8814660 (Version 5)
Quarter: 2013Q3

REPORT INFORMATION
  Report Type: Spontaneous
  Country: US (occurrence: US)
  Receive Date: 20120928
  Receipt Date: 20130717
  Transmission Date: 20140515
  Serious: No
  Sender: FDA-Public Use
  Company Number: US-009507513-1209USA007047

PATIENT
  Sex: Female

DRUGS (2)
  1. PEG-INTRON [Suspect]
     Indication: HEPATITIS C
     Dosage: UNK
     Dates: start: 20120913
  2. REBETOL [Suspect]
     Indication: HEPATITIS C
     Dosage: UNK
     Route: 048
     Dates: start: 20120914

REACTIONS (21)
  - Insomnia [Unknown]
  - Malaise [Unknown]
  - Anaemia [Unknown]
  - Leukopenia [Unknown]
  - Insomnia [Unknown]
  - Disturbance in attention [Recovering/Resolving]
  - Fatigue [Not Recovered/Not Resolved]
  - Haemoglobin decreased [Unknown]
  - White blood cell count decreased [Unknown]
  - Fatigue [Unknown]
  - Anaemia [Unknown]
  - Haemoglobin decreased [Unknown]
  - Leukopenia [Unknown]
  - White blood cell count decreased [Unknown]
  - Depression [Unknown]
  - Mood swings [Unknown]
  - Alopecia [Unknown]
  - Anaemia [Unknown]
  - Fatigue [Unknown]
  - Insomnia [Unknown]
  - Haemoglobin decreased [Unknown]
